FAERS Safety Report 14989088 (Version 2)
Quarter: 2018Q2

REPORT INFORMATION
  Report Type: Spontaneous
  Country: TW (occurrence: TW)
  Receive Date: 20180608
  Receipt Date: 20180628
  Transmission Date: 20180711
  Serious: Yes (Hospitalization)
  Sender: FDA-Public Use
  Company Number: TW-SA-2018SA148673

PATIENT
  Age: 49 Year
  Sex: Male

DRUGS (2)
  1. ISONIAZID. [Suspect]
     Active Substance: ISONIAZID
     Dosage: 300 MG
     Route: 048
     Dates: start: 20180407, end: 20180525
  2. PRIFTIN [Suspect]
     Active Substance: RIFAPENTINE
     Dosage: 150 MG
     Route: 048
     Dates: start: 20180407, end: 20180525

REACTIONS (4)
  - Chromaturia [Unknown]
  - Yellow skin [Unknown]
  - Scleral discolouration [Unknown]
  - Influenza like illness [Unknown]
